FAERS Safety Report 8224215-X (Version None)
Quarter: 2012Q1

REPORT INFORMATION
  Report Type: 
  Country: None (occurrence: None)
  Receive Date: 20120307
  Receipt Date: 20110516
  Transmission Date: 20120608
  Serious: No
  Sender: FDA-Public Use
  Company Number: PHHY2011US42460

PATIENT
  Sex: Female

DRUGS (3)
  1. AFINITOR [Suspect]
  2. DASATIMIB [Concomitant]
  3. TAMOXIFEN CITRATE [Concomitant]

REACTIONS (4)
  - STOMATITIS [None]
  - LETHARGY [None]
  - WEIGHT DECREASED [None]
  - BACK PAIN [None]
